FAERS Safety Report 9851307 (Version 1)
Quarter: 2014Q1

REPORT INFORMATION
  Report Type: Spontaneous
  Country: GB (occurrence: GB)
  Receive Date: 20140129
  Receipt Date: 20140129
  Transmission Date: 20141002
  Serious: Yes (Other)
  Sender: FDA-Public Use
  Company Number: GB-PFIZER INC-2014022509

PATIENT
  Age: 64 Year
  Sex: Female

DRUGS (2)
  1. CHAMPIX [Suspect]
     Dosage: 1 MG, 2X/DAY
     Route: 048
     Dates: start: 20140112, end: 20140114
  2. SIMVASTATIN [Concomitant]
     Dosage: UNK

REACTIONS (5)
  - Abdominal pain upper [Recovering/Resolving]
  - Diarrhoea [Recovering/Resolving]
  - Abdominal discomfort [Recovering/Resolving]
  - Hypotension [Recovering/Resolving]
  - Dry mouth [Recovering/Resolving]
